FAERS Safety Report 25132375 (Version 1)
Quarter: 2025Q1

REPORT INFORMATION
  Report Type: Spontaneous
  Country: US (occurrence: US)
  Receive Date: 20250328
  Receipt Date: 20250328
  Transmission Date: 20250408
  Serious: Yes (Hospitalization, Other)
  Sender: JOHNSON AND JOHNSON
  Company Number: US-JNJFOC-20250351039

PATIENT
  Sex: Male

DRUGS (3)
  1. INVEGA SUSTENNA [Suspect]
     Active Substance: PALIPERIDONE PALMITATE
     Indication: Product used for unknown indication
     Route: 030
  2. INVEGA SUSTENNA [Suspect]
     Active Substance: PALIPERIDONE PALMITATE
  3. INVEGA SUSTENNA [Suspect]
     Active Substance: PALIPERIDONE PALMITATE

REACTIONS (10)
  - Hospitalisation [Unknown]
  - Renal injury [Unknown]
  - Stress [Unknown]
  - Anxiety [Unknown]
  - Cardiac disorder [Unknown]
  - Depression [Unknown]
  - Mental disorder [Unknown]
  - Delusion [Unknown]
  - Illness [Unknown]
  - Nervousness [Unknown]
